FAERS Safety Report 4903343-8 (Version None)
Quarter: 2006Q1

REPORT INFORMATION
  Report Type: 
  Country: None (occurrence: None)
  Receive Date: 20060206
  Receipt Date: 20060206
  Transmission Date: 20060701
  Serious: No
  Sender: FDA-Public Use
  Company Number: None

PATIENT
  Age: 79 Year
  Sex: Male

DRUGS (2)
  1. CLINDAMYCIN HCL [Suspect]
     Indication: HERPES ZOSTER
     Dosage: 300 MG PO QID
     Route: 048
     Dates: start: 20051102, end: 20051109
  2. CLINDAMYCIN HCL [Suspect]
     Indication: IMPETIGO
     Dosage: 300 MG PO QID
     Route: 048
     Dates: start: 20051102, end: 20051109

REACTIONS (3)
  - BLOOD PRESSURE DECREASED [None]
  - DIARRHOEA [None]
  - MYOCARDIAL INFARCTION [None]
